FAERS Safety Report 5177246-0 (Version None)
Quarter: 2006Q4

REPORT INFORMATION
  Report Type: 
  Country: None (occurrence: None)
  Receive Date: 20061218
  Receipt Date: 20061214
  Transmission Date: 20070319
  Serious: Yes (Death)
  Sender: FDA-Public Use
  Company Number: 2006UW28027

PATIENT
  Sex: Female

DRUGS (3)
  1. SEROQUEL [Suspect]
     Route: 048
  2. RISPERDAL [Suspect]
  3. ZYPREXA [Suspect]

REACTIONS (3)
  - DEATH [None]
  - EMOTIONAL DISORDER [None]
  - INJURY [None]
